FAERS Safety Report 8774501 (Version 3)
Quarter: 2014Q1

REPORT INFORMATION
  Report Type: Report from Study
  Country: JP (occurrence: JP)
  Receive Date: 20120907
  Receipt Date: 20140313
  Transmission Date: 20141002
  Serious: Yes (Hospitalization)
  Sender: FDA-Public Use
  Company Number: JP-VERTEX PHARMACEUTICAL INC.-AE-2012-010089

PATIENT
  Age: 68 Year
  Sex: Female

DRUGS (18)
  1. VX-950 (TELAPREVIR) [Suspect]
     Indication: CHRONIC HEPATITIS C
     Dosage: 750 MG, QD
     Route: 048
     Dates: start: 20120530, end: 20120602
  2. VX-950 (TELAPREVIR) [Suspect]
     Dosage: 500 MG, QD
     Route: 048
     Dates: start: 20120604, end: 20120619
  3. VX-950 (TELAPREVIR) [Suspect]
     Dosage: 250 MG, QD
     Route: 048
     Dates: start: 20120619, end: 20120704
  4. VX-950 (TELAPREVIR) [Suspect]
     Dosage: 250 MG, QD
     Route: 048
     Dates: start: 20120711, end: 20120904
  5. REBETOL [Suspect]
     Indication: CHRONIC HEPATITIS C
     Dosage: 200 MG, QD
     Route: 048
     Dates: start: 20120530, end: 20120704
  6. REBETOL [Suspect]
     Dosage: 200 MG, QD
     Route: 048
     Dates: start: 20120711, end: 20120904
  7. REBETOL [Suspect]
     Dosage: 400 MG, QD
     Route: 048
     Dates: start: 20120905, end: 20121023
  8. REBETOL [Suspect]
     Dosage: 200 MG, QD
     Route: 048
     Dates: start: 20121024, end: 20121204
  9. PEGINTRON [Suspect]
     Indication: CHRONIC HEPATITIS C
     Dosage: 1.0 ?G/KG, QW
     Route: 058
     Dates: start: 20120530, end: 20120704
  10. PEGINTRON [Suspect]
     Dosage: 1.0 ?G/KG, QW
     Route: 058
     Dates: start: 20120711, end: 20121128
  11. URSO [Concomitant]
     Dosage: 300 MG, QD
     Route: 048
     Dates: end: 20120710
  12. NU-LOTAN [Concomitant]
     Dosage: 50 MG, QD
     Route: 048
     Dates: end: 20120822
  13. ALDACTONE A [Concomitant]
     Dosage: 20 MG, QD
     Route: 048
     Dates: end: 20120622
  14. SELECTOL [Concomitant]
     Dosage: 100 MG, QD
     Route: 048
     Dates: end: 20120703
  15. ADALAT-CR [Concomitant]
     Dosage: 20 MG, QD
     Route: 048
     Dates: start: 20120530, end: 20120822
  16. GLYCYRON [Concomitant]
     Dosage: 150 MG,QD
     Route: 048
     Dates: end: 20120710
  17. SENNOSIDE [Concomitant]
     Dosage: 12 MG, QD
     Route: 048
     Dates: start: 20120718
  18. GASTER D [Concomitant]
     Dosage: 20 MG, QD
     Route: 048
     Dates: start: 20120801

REACTIONS (1)
  - Renal impairment [Recovered/Resolved]
